FAERS Safety Report 4347765-5 (Version None)
Quarter: 2004Q2

REPORT INFORMATION
  Report Type: 
  Country: None (occurrence: None)
  Receive Date: 20040426
  Receipt Date: 20040422
  Transmission Date: 20050107
  Serious: Yes (Death)
  Sender: FDA-Public Use
  Company Number: 04-04-0587

PATIENT
  Age: 51 Year
  Sex: Female

DRUGS (2)
  1. CLOZAPINE [Suspect]
     Indication: BIPOLAR DISORDER
     Dosage: 150-275MG QD ORAL
     Dates: start: 19980401, end: 20040301
  2. CLOZAPINE [Suspect]
     Indication: IMPULSE-CONTROL DISORDER
     Dosage: 150-275MG QD ORAL
     Dates: start: 19980401, end: 20040301

REACTIONS (1)
  - CHOKING [None]
